FAERS Safety Report 15302905 (Version 1)
Quarter: 2018Q3

REPORT INFORMATION
  Report Type: Spontaneous
  Country: US (occurrence: US)
  Receive Date: 20180821
  Receipt Date: 20180821
  Transmission Date: 20181010
  Serious: No
  Sender: FDA-Public Use
  Company Number: US-ACTELION-A-NJ2018-177569

PATIENT
  Sex: Female

DRUGS (1)
  1. VALCHLOR [Suspect]
     Active Substance: MECHLORETHAMINE
     Indication: MYCOSIS FUNGOIDES
     Dosage: APPLY THIN LAYER TO AFFECTED AREA EVERY OTHER DAY
     Route: 061

REACTIONS (2)
  - Therapy non-responder [Unknown]
  - Inappropriate schedule of drug administration [Unknown]
